FAERS Safety Report 9717861 (Version 1)
Quarter: 2013Q4

REPORT INFORMATION
  Report Type: Spontaneous
  Country: US (occurrence: US)
  Receive Date: 20131125
  Receipt Date: 20131125
  Transmission Date: 20140711
  Serious: No
  Sender: FDA-Public Use
  Company Number: US-VIVUS-2012V1000288

PATIENT
  Age: 35 Year
  Sex: Female
  Weight: 80.36 kg

DRUGS (2)
  1. QSYMIA 3.75MG/23MG [Suspect]
     Indication: WEIGHT DECREASED
     Route: 048
     Dates: start: 20121201
  2. JUNEL [Concomitant]
     Indication: CONTRACEPTION
     Route: 048
     Dates: start: 2005

REACTIONS (1)
  - Dry mouth [Not Recovered/Not Resolved]
